FAERS Safety Report 18566367 (Version 7)
Quarter: 2021Q3

REPORT INFORMATION
  Report Type: Report from Study
  Country: US (occurrence: US)
  Receive Date: 20201201
  Receipt Date: 20210708
  Transmission Date: 20211014
  Serious: No
  Sender: FDA-Public Use
  Company Number: NVSC2020US319809

PATIENT
  Age: 60 Year
  Sex: Male

DRUGS (1)
  1. COSENTYX [Suspect]
     Active Substance: SECUKINUMAB
     Indication: PSORIASIS
     Dosage: 300 MG, QW (300 MG Q WEEK FOR FIVE WEEKS AND THEN Q FOUR WEEKS)
     Route: 058

REACTIONS (9)
  - Skin fissures [Unknown]
  - Injection site bruising [Unknown]
  - Drug ineffective [Unknown]
  - Skin haemorrhage [Unknown]
  - Rhinorrhoea [Unknown]
  - Dry skin [Unknown]
  - Cough [Unknown]
  - Onychoclasis [Recovering/Resolving]
  - Rash [Unknown]

NARRATIVE: CASE EVENT DATE: 20201025
